FAERS Safety Report 4546645-X (Version None)
Quarter: 2005Q1

REPORT INFORMATION
  Report Type: 
  Country: None (occurrence: None)
  Receive Date: 20050106
  Receipt Date: 20041228
  Transmission Date: 20050727
  Serious: Yes (Hospitalization)
  Sender: FDA-Public Use
  Company Number: US-BRISTOL-MYERS SQUIBB COMPANY-12807731

PATIENT
  Age: 62 Year
  Sex: Male

DRUGS (7)
  1. PACLITAXEL [Suspect]
     Indication: NON-SMALL CELL LUNG CANCER
     Route: 042
     Dates: start: 20041110, end: 20041110
  2. GEMZAR [Suspect]
     Indication: NON-SMALL CELL LUNG CANCER
     Route: 042
     Dates: start: 20041117, end: 20041117
  3. FOLIC ACID [Concomitant]
  4. M.V.I. [Concomitant]
  5. CALCIUM GLUCONATE [Concomitant]
  6. ASPIRIN [Concomitant]
  7. COLACE [Concomitant]

REACTIONS (7)
  - DUODENAL ULCER [None]
  - GASTRIC OUTLET OBSTRUCTION [None]
  - HAEMOGLOBIN DECREASED [None]
  - OESOPHAGITIS [None]
  - OESOPHAGITIS ULCERATIVE [None]
  - PLATELET COUNT DECREASED [None]
  - WHITE BLOOD CELL COUNT INCREASED [None]
